FAERS Safety Report 5747200-6 (Version None)
Quarter: 2008Q2

REPORT INFORMATION
  Report Type: 
  Country: None (occurrence: None)
  Receive Date: 20080520
  Receipt Date: 20080325
  Transmission Date: 20081010
  Serious: Yes (Death)
  Sender: FDA-Public Use
  Company Number: 2008SP000717

PATIENT
  Age: 35 Year
  Sex: Female
  Weight: 60.78 kg

DRUGS (14)
  1. LUNESTA [Suspect]
     Dosage: 3 MG; HS; ORAL
     Route: 048
  2. OPANA ER [Suspect]
     Indication: PAIN
     Dosage: 40 MG; BID; ORAL, 40 MG; QD; ORAL, 20 MG; HS; ORAL
     Route: 048
     Dates: start: 20070407, end: 20070508
  3. OPANA ER [Suspect]
     Indication: PAIN
     Dosage: 40 MG; BID; ORAL, 40 MG; QD; ORAL, 20 MG; HS; ORAL
     Route: 048
     Dates: start: 20070509
  4. OPANA ER [Suspect]
     Indication: PAIN
     Dosage: 40 MG; BID; ORAL, 40 MG; QD; ORAL, 20 MG; HS; ORAL
     Route: 048
     Dates: start: 20070509
  5. OPANA [Suspect]
     Indication: BREAKTHROUGH PAIN
     Dosage: 5 MG; Q12H; ORAL, 5 MG; TID; ORAL
     Route: 048
     Dates: start: 20070407, end: 20070508
  6. OPANA [Suspect]
     Indication: BREAKTHROUGH PAIN
     Dosage: 5 MG; Q12H; ORAL, 5 MG; TID; ORAL
     Route: 048
     Dates: start: 20070509
  7. DURAGESIC        (100 UG) [Suspect]
     Indication: PAIN
     Dosage: 100 UG; BIW, TRANSDERMAL
     Route: 062
     Dates: start: 20070401
  8. VICODIN ES [Suspect]
     Indication: PAIN
     Dosage: ; QID; ORAL
     Route: 048
  9. AMITRIPTYLINE HCL [Suspect]
     Dosage: 300 MG; HS; ORAL
     Route: 048
  10. ZOLOFT [Suspect]
     Dosage: 100 MG; QD; ORAL
     Route: 048
  11. PROVIGIL [Suspect]
     Dosage: 200 MG;
  12. LEVOXYL [Suspect]
     Dosage: ; QD; ORAL
     Route: 048
  13. KLONOPIN [Suspect]
     Dosage: 6 MG; QD; ORAL
     Route: 048
  14. ARAVA [Suspect]
     Indication: RHEUMATOID ARTHRITIS
     Dosage: 20 MG; QD;
     Dates: end: 20070401

REACTIONS (10)
  - ACCIDENTAL DEATH [None]
  - BRAIN OEDEMA [None]
  - BREAKTHROUGH PAIN [None]
  - DRUG TOXICITY [None]
  - EXOSTOSIS [None]
  - INADEQUATE ANALGESIA [None]
  - PULMONARY CONGESTION [None]
  - PULMONARY OEDEMA [None]
  - SCAR [None]
  - TREATMENT NONCOMPLIANCE [None]
